FAERS Safety Report 10231260 (Version 3)
Quarter: 2015Q2

REPORT INFORMATION
  Report Type: Spontaneous
  Country: US (occurrence: US)
  Receive Date: 20140611
  Receipt Date: 20150611
  Transmission Date: 20150821
  Serious: Yes (Hospitalization, Other)
  Sender: FDA-Public Use
  Company Number: US-GLAXOSMITHKLINE-A1075786A

PATIENT
  Age: 24 Year
  Sex: Female

DRUGS (6)
  1. FLOLAN [Suspect]
     Active Substance: EPOPROSTENOL SODIUM
     Dosage: 21 NG/KG/MIN
  2. FLOLAN [Suspect]
     Active Substance: EPOPROSTENOL SODIUM
     Indication: PULMONARY ARTERIAL HYPERTENSION
     Dosage: 21 NG/KG/MIN (CONCENTRATION 30,000 NG/ML, PUMP RATE 72 ML/DAY, VIAL STRENGTH 1.5 MG
     Route: 042
     Dates: start: 20060905
  3. FLOLAN [Suspect]
     Active Substance: EPOPROSTENOL SODIUM
     Dosage: 21 NG/KG/MIN
  4. AMOXICILLIN. [Concomitant]
     Active Substance: AMOXICILLIN
     Dosage: 500 MG, TID
     Dates: end: 20150311
  5. COUMADIN [Concomitant]
     Active Substance: WARFARIN SODIUM
  6. ADCIRCA [Concomitant]
     Active Substance: TADALAFIL

REACTIONS (4)
  - Cardiac flutter [Unknown]
  - Tooth infection [Unknown]
  - Oropharyngeal pain [Unknown]
  - Device leakage [Unknown]

NARRATIVE: CASE EVENT DATE: 201503
